FAERS Safety Report 10621693 (Version 1)
Quarter: 2014Q4

REPORT INFORMATION
  Report Type: Report from Study
  Country: IL (occurrence: IL)
  Receive Date: 20141203
  Receipt Date: 20141203
  Transmission Date: 20150529
  Serious: Yes (Hospitalization)
  Sender: FDA-Public Use
  Company Number: DE-ASTRAZENECA-2014SE92115

PATIENT
  Age: 61 Year
  Sex: Female

DRUGS (6)
  1. OMEPRAZOLE MAGNESIUM. [Suspect]
     Active Substance: OMEPRAZOLE MAGNESIUM
     Route: 048
  2. METHOTREXATE [Interacting]
     Active Substance: METHOTREXATE
     Indication: POLYMYALGIA RHEUMATICA
     Dosage: UNK UNK,
     Route: 065
  3. PREDNISONE. [Concomitant]
     Active Substance: PREDNISONE
  4. COLCHICINE. [Concomitant]
     Active Substance: COLCHICINE
  5. ALENDRONATE SODIUM. [Concomitant]
     Active Substance: ALENDRONATE SODIUM
  6. ASPIRIN. [Interacting]
     Active Substance: ASPIRIN
     Route: 048

REACTIONS (4)
  - Hepatotoxicity [Unknown]
  - Drug interaction [Unknown]
  - Toxicity to various agents [Unknown]
  - Pancytopenia [Unknown]
